FAERS Safety Report 7610926-3 (Version None)
Quarter: 2011Q3

REPORT INFORMATION
  Report Type: 
  Country: None (occurrence: None)
  Receive Date: 20110715
  Receipt Date: 20110630
  Transmission Date: 20111222
  Serious: Yes (Other)
  Sender: FDA-Public Use
  Company Number: PHHY2011BR58450

PATIENT
  Sex: Female
  Weight: 85 kg

DRUGS (3)
  1. CLONAZEPAM [Concomitant]
     Dosage: 2 MG, UNK
     Route: 048
  2. DIOVAN [Suspect]
     Indication: HYPERTENSION
     Dosage: 1 DF, DAILY
  3. ARIMIDEX [Concomitant]
     Dosage: 1 DF, DAILY
     Route: 048

REACTIONS (4)
  - DYSPNOEA [None]
  - BREAST CANCER [None]
  - FATIGUE [None]
  - WEIGHT INCREASED [None]
